FAERS Safety Report 6375804-9 (Version None)
Quarter: 2009Q3

REPORT INFORMATION
  Report Type: 
  Country: None (occurrence: None)
  Receive Date: 20090924
  Receipt Date: 20090916
  Transmission Date: 20100115
  Serious: Yes (Other)
  Sender: FDA-Public Use
  Company Number: US-SANOFI-SYNTHELABO-A03200904170

PATIENT
  Sex: Female

DRUGS (1)
  1. MULTAQ [Suspect]
     Indication: ARRHYTHMIA
     Route: 048
     Dates: start: 20090909, end: 20090911

REACTIONS (6)
  - BRADYCARDIA [None]
  - DIPLOPIA [None]
  - DIZZINESS [None]
  - HALLUCINATION [None]
  - HEART RATE IRREGULAR [None]
  - INSOMNIA [None]
